FAERS Safety Report 6489694-7 (Version None)
Quarter: 2009Q4

REPORT INFORMATION
  Report Type: 
  Country: None (occurrence: None)
  Receive Date: 20091207
  Receipt Date: 20091124
  Transmission Date: 20100525
  Serious: Yes (Other)
  Sender: FDA-Public Use
  Company Number: 2009AP004606

PATIENT
  Age: 49 Year
  Sex: Female

DRUGS (3)
  1. MYCOPHENOLATE MOFETIL [Suspect]
     Indication: IMMUNOSUPPRESSION
     Dates: start: 20010101
  2. PREDNISONE [Suspect]
     Indication: IMMUNOSUPPRESSION
     Dates: start: 20010101
  3. TACROLIMUS [Suspect]
     Indication: IMMUNOSUPPRESSION
     Dates: start: 20010101

REACTIONS (18)
  - BLINDNESS [None]
  - CYTOMEGALOVIRUS INFECTION [None]
  - DECREASED APPETITE [None]
  - DIARRHOEA [None]
  - ELECTROLYTE IMBALANCE [None]
  - EYE PAIN [None]
  - GASTRITIS EROSIVE [None]
  - GLIOSIS [None]
  - MUSCULAR WEAKNESS [None]
  - NUCLEAR MAGNETIC RESONANCE IMAGING BRAIN ABNORMAL [None]
  - OPTIC ATROPHY [None]
  - OPTIC DISCS BLURRED [None]
  - OPTIC NERVE DISORDER [None]
  - OPTIC NEURITIS [None]
  - OPTIC TRACT GLIOMA [None]
  - PUPILLARY REFLEX IMPAIRED [None]
  - VISUAL ACUITY REDUCED [None]
  - VISUAL PATHWAY DISORDER [None]
